FAERS Safety Report 4684254-2 (Version None)
Quarter: 2005Q2

REPORT INFORMATION
  Report Type: 
  Country: None (occurrence: None)
  Receive Date: 20050531
  Receipt Date: 20041012
  Transmission Date: 20051028
  Serious: Yes (Other)
  Sender: FDA-Public Use
  Company Number: USA041080873

PATIENT
  Age: 27 Year
  Sex: Male
  Weight: 77 kg

DRUGS (1)
  1. ZYPREXA [Suspect]
     Indication: SCHIZOPHRENIA, PARANOID TYPE
     Dosage: 30 MG DAY
     Dates: start: 19991119, end: 20040521

REACTIONS (3)
  - BLOOD GLUCOSE ABNORMAL [None]
  - PRESCRIBED OVERDOSE [None]
  - WEIGHT INCREASED [None]
